FAERS Safety Report 7480341-4 (Version None)
Quarter: 2011Q2

REPORT INFORMATION
  Report Type: 
  Country: None (occurrence: None)
  Receive Date: 20110504
  Receipt Date: 20110420
  Transmission Date: 20111010
  Serious: Yes (Hospitalization)
  Sender: FDA-Public Use
  Company Number: 2011-00457

PATIENT
  Age: 67 Year
  Sex: Female
  Weight: 80.2867 kg

DRUGS (2)
  1. SIMVASTATIN [Suspect]
     Indication: HYPERCHOLESTEROLAEMIA
     Dosage: 10 MG (10 MG, 1 IN 1 D), PER ORAL
     Route: 048
     Dates: start: 20100802, end: 20110223
  2. SIMVASTATIN [Suspect]
     Indication: GLUCOSE TOLERANCE IMPAIRED
     Dosage: 10 MG (10 MG, 1 IN 1 D), PER ORAL
     Route: 048
     Dates: start: 20100802, end: 20110223

REACTIONS (3)
  - APLASTIC ANAEMIA [None]
  - STOMATITIS [None]
  - CONTUSION [None]
